FAERS Safety Report 20576418 (Version 1)
Quarter: 2022Q1

REPORT INFORMATION
  Report Type: Spontaneous
  Country: KR (occurrence: KR)
  Receive Date: 20220310
  Receipt Date: 20220310
  Transmission Date: 20220424
  Serious: Yes (Other)
  Sender: FDA-Public Use
  Company Number: KR-MSNLABS-2022MSNLIT00209

PATIENT

DRUGS (2)
  1. PACLITAXEL [Suspect]
     Active Substance: PACLITAXEL
     Indication: Angiosarcoma
     Route: 065
  2. DOXORUBICIN [Suspect]
     Active Substance: DOXORUBICIN
     Indication: Angiosarcoma
     Route: 065

REACTIONS (2)
  - Drug ineffective [Unknown]
  - Metastases to central nervous system [Unknown]
